FAERS Safety Report 5310746-9 (Version None)
Quarter: 2007Q2

REPORT INFORMATION
  Report Type: 
  Country: None (occurrence: None)
  Receive Date: 20070428
  Receipt Date: 20070417
  Transmission Date: 20071010
  Serious: Yes (Other)
  Sender: FDA-Public Use
  Company Number: JP-PFIZER INC-2007030041

PATIENT
  Sex: Female

DRUGS (6)
  1. HALCION [Suspect]
     Dosage: DAILY DOSE:.25MG
     Route: 048
  2. CONTOMIN [Concomitant]
     Route: 048
  3. PZC [Concomitant]
     Route: 048
  4. BIPERIDEN HYDROCHLORIDE TAB [Concomitant]
     Route: 048
  5. SEPAZON [Concomitant]
     Route: 048
  6. LENDORMIN [Concomitant]
     Route: 048

REACTIONS (2)
  - HAEMORRHAGE SUBCUTANEOUS [None]
  - PURPURA [None]
